FAERS Safety Report 9438268 (Version 1)
Quarter: 2013Q3

REPORT INFORMATION
  Report Type: Spontaneous
  Country: US (occurrence: US)
  Receive Date: 20130802
  Receipt Date: 20130802
  Transmission Date: 20140515
  Serious: No
  Sender: FDA-Public Use
  Company Number: US-BRISTOL-MYERS SQUIBB COMPANY-17002346

PATIENT
  Age: 37 Year
  Sex: Female

DRUGS (2)
  1. COUMADIN [Suspect]
     Indication: THROMBOSIS
     Dosage: AT BED TIME
     Dates: start: 20120828
  2. LOVENOX [Suspect]
     Indication: THROMBOSIS
     Route: 065
     Dates: start: 20120828

REACTIONS (4)
  - Heart rate increased [Recovered/Resolved]
  - Vision blurred [Unknown]
  - Pain in extremity [Unknown]
  - Epistaxis [Unknown]
